FAERS Safety Report 6319092-8 (Version None)
Quarter: 2009Q3

REPORT INFORMATION
  Report Type: 
  Country: None (occurrence: None)
  Receive Date: 20090821
  Receipt Date: 20080801
  Transmission Date: 20100115
  Serious: No
  Sender: FDA-Public Use
  Company Number: US-ABBOTT-08P-163-0467755-00

PATIENT
  Sex: Female
  Weight: 73.548 kg

DRUGS (4)
  1. NIASPAN [Suspect]
     Indication: BLOOD TRIGLYCERIDES INCREASED
     Route: 048
     Dates: start: 20080711
  2. LISINOPRIL [Concomitant]
     Indication: HYPERTENSION
     Route: 048
  3. EZETIMIBE [Concomitant]
     Indication: BLOOD TRIGLYCERIDES INCREASED
     Route: 048
  4. COLESEVELAM HYDROCHLORIDE [Concomitant]
     Indication: BLOOD TRIGLYCERIDES INCREASED
     Dosage: 6 PILLS A DAY
     Route: 048

REACTIONS (1)
  - HEART RATE ABNORMAL [None]
